FAERS Safety Report 8163628-1 (Version None)
Quarter: 2012Q1

REPORT INFORMATION
  Report Type: 
  Country: None (occurrence: None)
  Receive Date: 20120103
  Receipt Date: 20111122
  Transmission Date: 20120608
  Serious: No
  Sender: FDA-Public Use
  Company Number: AE-2011-002376

PATIENT
  Age: 50 Year
  Sex: Male
  Weight: 92.9874 kg

DRUGS (3)
  1. INCIVEK [Suspect]
     Dosage: 6 DOSAGE FORMS (2 DOSAGE FORMS,3 IN 1 D),ORAL
     Route: 048
     Dates: start: 20110909, end: 20111013
  2. RIBAPAK (RIBAVIRIN) [Concomitant]
  3. PEGASYS [Concomitant]

REACTIONS (3)
  - RASH [None]
  - DRUG INEFFECTIVE [None]
  - PRURITUS [None]
